FAERS Safety Report 4911913-6 (Version None)
Quarter: 2006Q1

REPORT INFORMATION
  Report Type: 
  Country: None (occurrence: None)
  Receive Date: 20060213
  Receipt Date: 20060213
  Transmission Date: 20060701
  Serious: Yes (Other)
  Sender: FDA-Public Use
  Company Number: None

PATIENT
  Sex: Male
  Weight: 74.7528 kg

DRUGS (4)
  1. OXYCONTIN [Suspect]
     Indication: CHEST PAIN
     Dosage: 1 BID
  2. OXYCONTIN [Suspect]
     Indication: INTERVERTEBRAL DISC PROTRUSION
     Dosage: 1 BID
  3. OXYCONTIN [Suspect]
     Indication: CHEST PAIN
     Dosage: 1 BID
  4. OXYCONTIN [Suspect]
     Indication: INTERVERTEBRAL DISC PROTRUSION
     Dosage: 1 BID

REACTIONS (1)
  - STOMACH DISCOMFORT [None]
